FAERS Safety Report 22691462 (Version 2)
Quarter: 2023Q4

REPORT INFORMATION
  Report Type: Report from Study
  Country: US (occurrence: US)
  Receive Date: 20230711
  Receipt Date: 20231226
  Transmission Date: 20240110
  Serious: Yes (Other)
  Sender: FDA-Public Use
  Company Number: US-ABBVIE-4762723

PATIENT
  Age: 61 Year
  Sex: Female
  Weight: 75 kg

DRUGS (5)
  1. SKYRIZI [Suspect]
     Active Substance: RISANKIZUMAB-RZAA
     Indication: Crohn^s disease
     Route: 058
     Dates: start: 20230602, end: 20230602
  2. SKYRIZI [Suspect]
     Active Substance: RISANKIZUMAB-RZAA
     Indication: Crohn^s disease
     Route: 042
     Dates: start: 20230310, end: 20230310
  3. SKYRIZI [Suspect]
     Active Substance: RISANKIZUMAB-RZAA
     Indication: Crohn^s disease
     Route: 042
     Dates: start: 20230407, end: 20230407
  4. SKYRIZI [Suspect]
     Active Substance: RISANKIZUMAB-RZAA
     Indication: Crohn^s disease
     Route: 042
     Dates: start: 20230505
  5. COVID-19 VACCINE NOS [Suspect]
     Active Substance: COVID-19 VACCINE NOS
     Indication: COVID-19 immunisation
     Route: 065

REACTIONS (40)
  - Hypogammaglobulinaemia [Unknown]
  - Vomiting [Recovered/Resolved]
  - Immunodeficiency common variable [Unknown]
  - Injection site swelling [Recovered/Resolved]
  - Vomiting [Unknown]
  - Norovirus infection [Unknown]
  - Heart rate irregular [Unknown]
  - Ventricular extrasystoles [Unknown]
  - Vomiting [Recovered/Resolved]
  - Adrenal insufficiency [Unknown]
  - Vomiting [Recovered/Resolved]
  - Aortic aneurysm [Unknown]
  - Sinus tachycardia [Unknown]
  - Vomiting [Recovered/Resolved]
  - Injection site bruising [Recovered/Resolved]
  - Diarrhoea [Recovered/Resolved]
  - Diarrhoea [Recovered/Resolved]
  - Arthritis [Unknown]
  - Faecal calprotectin abnormal [Recovering/Resolving]
  - Restrictive pulmonary disease [Unknown]
  - Binocular eye movement disorder [Unknown]
  - Diarrhoea [Recovered/Resolved]
  - Medical device implantation [Recovering/Resolving]
  - Respiratory failure [Unknown]
  - Central sleep apnoea syndrome [Unknown]
  - Autoimmune hepatitis [Unknown]
  - Osteopenia [Unknown]
  - Autoimmune pancreatitis [Unknown]
  - Diarrhoea [Recovered/Resolved]
  - Neuromyopathy [Unknown]
  - Dystonia [Unknown]
  - Chronic inflammatory demyelinating polyradiculoneuropathy [Unknown]
  - Stress fracture [Unknown]
  - Spasmodic dysphonia [Unknown]
  - Tremor [Unknown]
  - Small fibre neuropathy [Unknown]
  - Combined immunodeficiency [Unknown]
  - Knee arthroplasty [Recovering/Resolving]
  - Diarrhoea [Unknown]
  - Arthralgia [Unknown]

NARRATIVE: CASE EVENT DATE: 20230310
